FAERS Safety Report 7447483-0 (Version None)
Quarter: 2011Q2

REPORT INFORMATION
  Report Type: 
  Country: None (occurrence: None)
  Receive Date: 20110429
  Receipt Date: 20110422
  Transmission Date: 20111010
  Serious: No
  Sender: FDA-Public Use
  Company Number: B0715564A

PATIENT
  Age: 16 Year
  Sex: Male

DRUGS (1)
  1. RELENZA [Suspect]
     Dosage: 20MG PER DAY
     Route: 055

REACTIONS (2)
  - MEDICATION ERROR [None]
  - ACCIDENTAL OVERDOSE [None]
